FAERS Safety Report 9729327 (Version 1)
Quarter: 2013Q4

REPORT INFORMATION
  Report Type: Spontaneous
  Country: US (occurrence: US)
  Receive Date: 20131204
  Receipt Date: 20131204
  Transmission Date: 20140711
  Serious: No
  Sender: FDA-Public Use
  Company Number: US-TEVA-445121USA

PATIENT
  Age: 29 Year
  Sex: Female
  Weight: 111.23 kg

DRUGS (3)
  1. PARAGARD 380A [Suspect]
     Indication: CONTRACEPTION
     Dates: start: 20131113
  2. FUROSEMIDE [Concomitant]
  3. POTASSIUM [Concomitant]

REACTIONS (1)
  - Device expulsion [Not Recovered/Not Resolved]
